FAERS Safety Report 6195957-5 (Version None)
Quarter: 2009Q2

REPORT INFORMATION
  Report Type: 
  Country: None (occurrence: None)
  Receive Date: 20090520
  Receipt Date: 20090506
  Transmission Date: 20091009
  Serious: Yes (Hospitalization, Other)
  Sender: FDA-Public Use
  Company Number: PHHY2009US17482

PATIENT
  Age: 51 Year
  Sex: Female

DRUGS (3)
  1. ZOLEDRONIC ACID [Suspect]
     Indication: MULTIPLE MYELOMA
  2. ANTIBIOTICS [Concomitant]
     Route: 042
  3. ANTIFUNGALS [Concomitant]
     Route: 042

REACTIONS (24)
  - ABSCESS [None]
  - ABSCESS DRAINAGE [None]
  - BACTERIAL INFECTION [None]
  - BONE EROSION [None]
  - BONE LESION [None]
  - BRAIN ABSCESS [None]
  - CRANIAL NERVE DISORDER [None]
  - CRANIOTOMY [None]
  - DEBRIDEMENT [None]
  - ETHMOID SINUS SURGERY [None]
  - EXOPHTHALMOS [None]
  - FRONTAL SINUS OPERATION [None]
  - HEADACHE [None]
  - INFLAMMATION [None]
  - NASAL ABSCESS [None]
  - NEPHRECTOMY [None]
  - OSTEONECROSIS [None]
  - PAROPHTHALMIA [None]
  - PERIORBITAL OEDEMA [None]
  - RENAL CANCER [None]
  - RHINITIS [None]
  - SINUS ANTROSTOMY [None]
  - SINUSITIS [None]
  - STAPHYLOCOCCAL INFECTION [None]
